FAERS Safety Report 4621124-X (Version None)
Quarter: 2005Q1

REPORT INFORMATION
  Report Type: 
  Country: None (occurrence: None)
  Receive Date: 20050328
  Receipt Date: 20050317
  Transmission Date: 20050727
  Serious: Yes (Hospitalization)
  Sender: FDA-Public Use
  Company Number: MK200503-0234-1

PATIENT
  Age: 36 Year
  Sex: Female

DRUGS (1)
  1. I131 ORAL SOLUTION THER 5MCI [Suspect]
     Indication: HYPERTHYROIDISM
     Dosage: 5 MCI, ONE TIME, PO
     Route: 048
     Dates: start: 20000917

REACTIONS (2)
  - BLOOD CALCIUM DECREASED [None]
  - HYPERTHYROIDISM [None]
